FAERS Safety Report 5807123-0 (Version None)
Quarter: 2008Q3

REPORT INFORMATION
  Report Type: 
  Country: None (occurrence: None)
  Receive Date: 20080711
  Receipt Date: 20080627
  Transmission Date: 20090109
  Serious: Yes (Hospitalization, Other)
  Sender: FDA-Public Use
  Company Number: PHHY2008CA12720

PATIENT

DRUGS (26)
  1. ZOLEDRONIC ACID [Suspect]
     Indication: OSTEOPOROSIS
     Dosage: 5 MG,YEARLY
     Route: 042
     Dates: start: 20080613
  2. PALAFER [Concomitant]
     Dosage: 300 MG, QD
  3. ENTERIC ASPIRIN [Concomitant]
     Dosage: 81 MG, QD
  4. ALLEGRA [Concomitant]
     Dosage: 60 MG, BID
  5. NOVOQUININE [Concomitant]
     Dosage: 300 MG, QHS
  6. SINGULAIR [Concomitant]
     Dosage: 10 MG, QD
  7. SENOKOT [Concomitant]
     Dosage: 8.6 MG, QD
  8. MORPHINE [Concomitant]
     Dosage: 80 MG, TID
  9. COVERSYL [Concomitant]
     Dosage: 8 MG, QD
  10. PAROXETINE HCL [Concomitant]
     Dosage: 20 MG, QHS
  11. FUROSEMIDE [Concomitant]
     Dosage: 40 MG, QHS
  12. MINITRAN [Concomitant]
     Dosage: 6 MG, QHS
  13. ALLOPURINOL [Concomitant]
     Dosage: 100 MG, QHS
  14. OMEPRAZOLE [Concomitant]
     Dosage: 20 MG, QD
  15. TRAZEC [Concomitant]
     Dosage: 360 MG, QHS
  16. CRESTOR [Concomitant]
     Dosage: 10 MG, QHS
  17. PREDNISOLONE [Concomitant]
     Dosage: 5 MG, QD
  18. DIAMICRON MR [Concomitant]
     Dosage: 30 MG, QD
  19. TRAZODONE HCL [Concomitant]
     Dosage: 100 MG, QHS
  20. ADVAIR DISKUS 100/50 [Concomitant]
     Dosage: 250 MG, BID
  21. STATEX [Concomitant]
     Dosage: 30 MG, PRN
  22. HYDROXYZINE [Concomitant]
     Dosage: 20 MG, PRN
  23. SPIRIVA [Concomitant]
     Dosage: 18 UG, QD
  24. TYLENOL (CAPLET) [Concomitant]
     Dosage: 650 MG, PRN
  25. NITROGLYCERIN [Concomitant]
     Dosage: 4 MG, PRN
     Route: 060
  26. LACTULOSE [Concomitant]
     Dosage: 2 TSP, QD

REACTIONS (14)
  - ANGINA UNSTABLE [None]
  - BLOOD CALCIUM DECREASED [None]
  - BLOOD CREATININE INCREASED [None]
  - CHEST PAIN [None]
  - CHRONIC OBSTRUCTIVE PULMONARY DISEASE [None]
  - DIARRHOEA [None]
  - DYSPNOEA [None]
  - ELECTROCARDIOGRAM ST SEGMENT DEPRESSION [None]
  - HYPERHIDROSIS [None]
  - INSOMNIA [None]
  - NAUSEA [None]
  - OEDEMA PERIPHERAL [None]
  - PERIORBITAL OEDEMA [None]
  - PULMONARY OEDEMA [None]
